FAERS Safety Report 4371238-7 (Version None)
Quarter: 2004Q2

REPORT INFORMATION
  Report Type: 
  Country: None (occurrence: None)
  Receive Date: 20040603
  Receipt Date: 20040517
  Transmission Date: 20050107
  Serious: Yes (Death, Life-Threatening, Hospitalization)
  Sender: FDA-Public Use
  Company Number: GB-JNJFOC-20040405770

PATIENT
  Age: 61 Year
  Sex: Male

DRUGS (5)
  1. REMICADE [Suspect]
     Indication: RHEUMATOID ARTHRITIS
     Dosage: 200 MG, INTRAVENOUS
     Route: 042
     Dates: start: 20031006, end: 20040301
  2. METHOTREXATE [Concomitant]
  3. VIOXX [Concomitant]
  4. PREDNISOLONE [Concomitant]
  5. FERROUS SULPHATE (FERROUS SULFATE) [Concomitant]

REACTIONS (6)
  - ABSCESS [None]
  - DIVERTICULAR PERFORATION [None]
  - INTESTINAL OBSTRUCTION [None]
  - INTESTINAL STENOSIS [None]
  - PERITONITIS [None]
  - SEPSIS [None]
